FAERS Safety Report 8807192 (Version 4)
Quarter: 2014Q2

REPORT INFORMATION
  Report Type: Spontaneous
  Country: BR (occurrence: BR)
  Receive Date: 20120925
  Receipt Date: 20140521
  Transmission Date: 20141212
  Serious: Yes (Other)
  Sender: FDA-Public Use
  Company Number: BR-PFIZER INC-2012234608

PATIENT
  Age: 79 Year
  Sex: Male
  Weight: 63 kg

DRUGS (7)
  1. ERANZ [Suspect]
     Indication: MEMORY IMPAIRMENT
     Dosage: 5 MG, 1X/DAY
     Route: 048
     Dates: start: 2010
  2. ERANZ [Suspect]
     Indication: MEMORY IMPAIRMENT
     Dosage: 10 MG, 1X/DAY (AT NIGHT)
     Route: 048
  3. ERANZ [Suspect]
     Indication: AGGRESSION
  4. ERANZ [Suspect]
     Indication: DEMENTIA ALZHEIMER^S TYPE
  5. SERTRALINE HCL [Suspect]
     Indication: DEPRESSION
     Dosage: 50 MG, DAILY (IN THE MORNING)
     Route: 048
     Dates: start: 2010, end: 20120829
  6. QUETIAPINE FUMARATE [Concomitant]
     Indication: NERVOUSNESS
     Route: 048
  7. QUETIAPINE FUMARATE [Concomitant]
     Indication: AGGRESSION

REACTIONS (14)
  - Tuberculosis [Unknown]
  - Bacterial infection [Unknown]
  - Hypersensitivity [Not Recovered/Not Resolved]
  - Productive cough [Unknown]
  - Bronchitis [Unknown]
  - Cough [Unknown]
  - Throat irritation [Unknown]
  - Throat lesion [Unknown]
  - Chest pain [Unknown]
  - Pain [Unknown]
  - Agitation [Unknown]
  - Aggression [Unknown]
  - Insomnia [Unknown]
  - Anxiety [Unknown]
